FAERS Safety Report 16808177 (Version 2)
Quarter: 2025Q3

REPORT INFORMATION
  Report Type: Spontaneous
  Country: EU (occurrence: EU)
  Receive Date: 20190916
  Receipt Date: 20250710
  Transmission Date: 20251021
  Serious: Yes (Hospitalization)
  Sender: TEVA
  Company Number: None

PATIENT
  Age: 27 Year
  Sex: Male

DRUGS (2)
  1. MIRTAZAPINE [Suspect]
     Active Substance: MIRTAZAPINE
     Indication: Product used for unknown indication
     Route: 048
     Dates: start: 20190527, end: 20190527
  2. PROMETHAZINE HYDROCHLORIDE\THIOUREA [Suspect]
     Active Substance: PROMETHAZINE HYDROCHLORIDE\THIOUREA
     Indication: Product used for unknown indication
     Route: 048
     Dates: start: 20190527, end: 20190527

REACTIONS (7)
  - Suicide attempt [Unknown]
  - Somnolence [Unknown]
  - Intentional overdose [Unknown]
  - Abdominal pain [Unknown]
  - Depressed level of consciousness [Unknown]
  - Tachycardia [Unknown]
  - Electrocardiogram change [Unknown]

NARRATIVE: CASE EVENT DATE: 20190527
